FAERS Safety Report 6171899-6 (Version None)
Quarter: 2009Q2

REPORT INFORMATION
  Report Type: 
  Country: None (occurrence: None)
  Receive Date: 20090429
  Receipt Date: 20090421
  Transmission Date: 20091009
  Serious: Yes (Other)
  Sender: FDA-Public Use
  Company Number: US-JNJCH-2009011199

PATIENT
  Age: 30 Year
  Sex: Female

DRUGS (5)
  1. LISTERINE TOOTH DEFENSE [Suspect]
     Indication: DENTAL DISORDER PROPHYLAXIS
     Dosage: TEXT:UNSPECIFIED ONCE A DAY
     Route: 048
  2. CORTICOSTEROIDS [Concomitant]
     Indication: POLYMYALGIA RHEUMATICA
     Dosage: TEXT:UNSPECIFIED
     Route: 065
  3. LASIX [Concomitant]
     Indication: HYPERTENSION
     Dosage: TEXT:UNSPECIFIED
     Route: 065
  4. NOVOLOG [Concomitant]
     Indication: DIABETES MELLITUS
     Dosage: TEXT:UNSPECIFIED
     Route: 065
  5. PREDNISONE [Concomitant]
     Indication: POLYMYALGIA RHEUMATICA
     Dosage: TEXT:UNSPECIFIED
     Route: 065

REACTIONS (5)
  - APPLICATION SITE BURN [None]
  - APPLICATION SITE IRRITATION [None]
  - DYSPHAGIA [None]
  - SWOLLEN TONGUE [None]
  - TONGUE DISORDER [None]
